FAERS Safety Report 17477740 (Version 1)
Quarter: 2020Q1

REPORT INFORMATION
  Report Type: Report from Study
  Country: GB (occurrence: GB)
  Receive Date: 20200228
  Receipt Date: 20200228
  Transmission Date: 20200409
  Serious: Yes (Hospitalization, Other)
  Sender: FDA-Public Use
  Company Number: GB-MYLANLABS-2020M1021415

PATIENT
  Age: 56 Year
  Sex: Female

DRUGS (20)
  1. LOPERAMIDE [Concomitant]
     Active Substance: LOPERAMIDE
     Dosage: STANDARD DRUG IN SECOND CHEMO REGIME, AS NEEDED
     Route: 048
     Dates: start: 20151126
  2. LEVOFLOXACIN. [Concomitant]
     Active Substance: LEVOFLOXACIN
     Dosage: STANDARD PROPHYLACTIC DRUG GIVEN WITH 2ND REGIME
     Route: 048
     Dates: start: 20151130
  3. FLUCONAZOLE. [Concomitant]
     Active Substance: FLUCONAZOLE
     Dosage: START DAY 5 POST CHEMO FOR 7 DAYS
     Route: 048
     Dates: start: 20151130
  4. FLUCONAZOLE. [Concomitant]
     Active Substance: FLUCONAZOLE
     Dosage: STANDARD PROPHYLACTIC FOR 2ND REGIME
     Route: 048
     Dates: start: 20151130
  5. DOCETAXEL. [Suspect]
     Active Substance: DOCETAXEL
     Indication: BREAST CANCER
     Dosage: 6 CYCLES
     Route: 042
     Dates: start: 20151127, end: 20160308
  6. DALTEPARIN [Concomitant]
     Active Substance: DALTEPARIN
     Dosage: 10000 UNITS
     Route: 058
     Dates: start: 20160421
  7. CALCICHEW [Concomitant]
     Active Substance: CALCIUM CARBONATE
     Dosage: STANDARD SUPPLIMENT
     Route: 048
     Dates: start: 20150723
  8. TRASTUZUMAB. [Suspect]
     Active Substance: TRASTUZUMAB
     Dosage: 6 CYCLES
     Route: 042
     Dates: start: 20151217
  9. DENOSUMAB [Suspect]
     Active Substance: DENOSUMAB
     Dosage: 1 CYCLE
     Route: 042
     Dates: start: 20151126
  10. COLECALCIFEROL [Concomitant]
     Active Substance: CHOLECALCIFEROL
     Indication: PULMONARY EMBOLISM
     Dosage: 20000 UNIT
     Route: 048
     Dates: start: 20151203
  11. PERTUZUMAB. [Suspect]
     Active Substance: PERTUZUMAB
     Indication: BREAST CANCER
     Dosage: LOADING DOSE
     Route: 042
     Dates: start: 20151125, end: 20151125
  12. PERTUZUMAB. [Suspect]
     Active Substance: PERTUZUMAB
     Dosage: 420 MILLIGRAM, Q3W (6 CYCLES)
     Route: 042
     Dates: start: 20151215
  13. DOCETAXEL. [Suspect]
     Active Substance: DOCETAXEL
     Dosage: 150 MILLIGRAM, Q3W
     Route: 042
     Dates: start: 20151217
  14. LETROZOLE. [Suspect]
     Active Substance: LETROZOLE
     Indication: BREAST CANCER
     Dosage: 2.5 MILLIGRAM
     Route: 048
     Dates: start: 20150709, end: 20151015
  15. TRASTUZUMAB. [Suspect]
     Active Substance: TRASTUZUMAB
     Indication: BREAST CANCER
     Dosage: 6 CYCLES
     Route: 042
     Dates: start: 20151126
  16. TRASTUZUMAB. [Suspect]
     Active Substance: TRASTUZUMAB
     Dosage: 6 CYCLES
     Route: 042
     Dates: start: 20151127
  17. DENOSUMAB [Suspect]
     Active Substance: DENOSUMAB
     Dosage: 1 CYCLE
     Route: 058
     Dates: start: 20150820
  18. DENOSUMAB [Suspect]
     Active Substance: DENOSUMAB
     Indication: BREAST CANCER
     Dosage: 120 MILLIGRAM,1 CYCLE, 4 WEEKS
     Route: 058
     Dates: start: 20150723
  19. DEXAMETHASONE. [Concomitant]
     Active Substance: DEXAMETHASONE
     Dosage: STANDARD DRUG IN SECOND STEROID REGIME,PRIOR TO CHEMO CYCLE
     Route: 048
     Dates: start: 20151125
  20. DOMPERIDONE [Concomitant]
     Active Substance: DOMPERIDONE
     Dosage: STANDARD DRUG IN SECOND CHEMO REGIME, AS NEEDED
     Route: 048
     Dates: start: 20151126

REACTIONS (9)
  - Headache [Recovered/Resolved]
  - Oropharyngeal pain [Recovered/Resolved]
  - Nausea [Unknown]
  - Febrile neutropenia [Recovered/Resolved]
  - Stomatitis [Unknown]
  - Neurotoxicity [Unknown]
  - Alopecia [Recovered/Resolved]
  - Rectal haemorrhage [Recovered/Resolved]
  - Constipation [Unknown]

NARRATIVE: CASE EVENT DATE: 20151202
